FAERS Safety Report 4517329-9 (Version None)
Quarter: 2004Q4

REPORT INFORMATION
  Report Type: 
  Country: None (occurrence: None)
  Receive Date: 20041007
  Receipt Date: 20040402
  Transmission Date: 20050328
  Serious: Yes (Other)
  Sender: FDA-Public Use
  Company Number: 2004-04-0398

PATIENT
  Age: 36 Year
  Sex: Male
  Weight: 58.9676 kg

DRUGS (8)
  1. TEMODAR [Suspect]
     Indication: FIBROSARCOMA METASTATIC
     Dosage: ORAL
     Route: 048
  2. DOXIL [Suspect]
     Indication: FIBROSARCOMA METASTATIC
     Dosage: 34 MG, INTRAVENOUS
     Route: 042
     Dates: start: 20030817, end: 20030827
  3. DOXIL [Suspect]
     Indication: FIBROSARCOMA METASTATIC
     Dosage: 34 MG, INTRAVENOUS
     Route: 042
     Dates: start: 20030910, end: 20030910
  4. DOXIL [Suspect]
     Indication: FIBROSARCOMA METASTATIC
     Dosage: 34 MG, INTRAVENOUS
     Route: 042
     Dates: start: 20030924, end: 20030924
  5. DOXIL [Suspect]
     Indication: FIBROSARCOMA METASTATIC
     Dosage: 34 MG, INTRAVENOUS
     Route: 042
     Dates: start: 20031008, end: 20031008
  6. DOXIL [Suspect]
     Indication: FIBROSARCOMA METASTATIC
     Dosage: 34 MG, INTRAVENOUS
     Route: 042
     Dates: start: 20031205, end: 20031205
  7. THALIDOMIDE [Concomitant]
  8. ANALGESIC [Concomitant]

REACTIONS (1)
  - DISEASE PROGRESSION [None]
